FAERS Safety Report 9354333 (Version 2)
Quarter: 2013Q3

REPORT INFORMATION
  Report Type: Report from Study
  Country: BR (occurrence: BR)
  Receive Date: 20130618
  Receipt Date: 20130706
  Transmission Date: 20140515
  Serious: Yes (Hospitalization, Other)
  Sender: FDA-Public Use
  Company Number: BR-ELI_LILLY_AND_COMPANY-BR201306001856

PATIENT
  Sex: Female
  Weight: 71 kg

DRUGS (3)
  1. TERIPARATIDE [Suspect]
     Indication: OSTEOPOROSIS
     Dosage: 20 UG, QD
     Route: 058
  2. FENOTEROL [Concomitant]
     Dosage: UNK, UNKNOWN
     Route: 065
  3. CAPTOPRIL [Concomitant]
     Indication: BLOOD PRESSURE
     Dosage: UNK, UNKNOWN
     Route: 065

REACTIONS (7)
  - Cardiomegaly [Not Recovered/Not Resolved]
  - Lung disorder [Not Recovered/Not Resolved]
  - Hepatomegaly [Unknown]
  - Emphysema [Not Recovered/Not Resolved]
  - Local swelling [Unknown]
  - Arthropathy [Unknown]
  - Cardiovascular disorder [Unknown]
